FAERS Safety Report 21408068 (Version 3)
Quarter: 2023Q1

REPORT INFORMATION
  Report Type: Report from Study
  Country: US (occurrence: US)
  Receive Date: 20221004
  Receipt Date: 20230131
  Transmission Date: 20230418
  Serious: No
  Sender: FDA-Public Use
  Company Number: US-ABBVIE-22K-163-4521433-00

PATIENT
  Sex: Female

DRUGS (1)
  1. RINVOQ [Suspect]
     Active Substance: UPADACITINIB
     Indication: Rheumatoid arthritis
     Route: 048
     Dates: start: 20201227

REACTIONS (4)
  - Nasopharyngitis [Unknown]
  - Upper-airway cough syndrome [Unknown]
  - Anaemia [Unknown]
  - Peripheral swelling [Unknown]
